FAERS Safety Report 17716984 (Version 1)
Quarter: 2020Q2

REPORT INFORMATION
  Report Type: Spontaneous
  Country: US (occurrence: US)
  Receive Date: 20200427
  Receipt Date: 20200427
  Transmission Date: 20200714
  Serious: No
  Sender: FDA-Public Use
  Company Number: None

PATIENT
  Sex: Female

DRUGS (1)
  1. HEPARIN L/L FLUSH SYRINGE 100U/ML MEDEFIL, INC [Suspect]
     Active Substance: HEPARIN SODIUM
     Indication: COMPLEMENT DEFICIENCY DISEASE
     Dosage: ?          OTHER STRENGTH:100 U/ML;?
     Route: 042
     Dates: start: 20200320

REACTIONS (2)
  - Swelling [None]
  - Condition aggravated [None]
